FAERS Safety Report 9702729 (Version 2)
Quarter: 2013Q4

REPORT INFORMATION
  Report Type: Spontaneous
  Country: GB (occurrence: GB)
  Receive Date: 20131121
  Receipt Date: 20131121
  Transmission Date: 20140711
  Serious: Yes (Hospitalization)
  Sender: FDA-Public Use
  Company Number: GB-WATSON-2002-03243

PATIENT
  Age: 73 Year
  Sex: Male

DRUGS (5)
  1. ATENOLOL (UNKNOWN) [Suspect]
     Indication: PRODUCT USED FOR UNKNOWN INDICATION
     Dosage: 50-100 MG, ONCE
     Route: 048
  2. ASPIRIN [Concomitant]
     Indication: RETINAL ARTERY OCCLUSION
     Dosage: 75 MG, SINGLE
     Route: 048
  3. BENDROFLUAZIDE [Concomitant]
     Indication: HYPERTENSION
     Dosage: 2.5 MG, SINGLE
     Route: 048
  4. IRBESARTAN [Concomitant]
     Indication: NEPHROSCLEROSIS
     Dosage: 225 MG, SINGLE
     Route: 048
     Dates: start: 20020227
  5. ATORVASTATIN [Concomitant]
     Indication: BLOOD CHOLESTEROL INCREASED
     Dosage: 20 MG, UNK
     Route: 048
     Dates: start: 20020227

REACTIONS (2)
  - Circulatory collapse [Recovering/Resolving]
  - Heart rate decreased [Recovering/Resolving]
